FAERS Safety Report 11409367 (Version 1)
Quarter: 2015Q3

REPORT INFORMATION
  Report Type: Spontaneous
  Country: US (occurrence: None)
  Receive Date: 20150820
  Receipt Date: 20150820
  Transmission Date: 20151125
  Serious: Yes (Hospitalization)
  Sender: FDA-Public Use
  Company Number: TPU2015-00429

PATIENT
  Age: 58 Year
  Sex: Male
  Weight: 131.54 kg

DRUGS (4)
  1. LIDOCAINE PATCH 5% (QUALITEST) (LIDOCAINE PATCH 5%) (5 PERCENT, POULTICE OR PATCH) [Suspect]
     Active Substance: LIDOCAINE
     Indication: PAIN IN EXTREMITY
     Dosage: 1 PLASTER , 1 IN 2 D, TOPICAL
     Route: 061
     Dates: start: 2000
  2. NEUROTRYPTYLINE (NORTRIPTYLINE) [Concomitant]
  3. PERCOCET (TYLOX) [Concomitant]
  4. MORPHINE SULFATE ER (MORPHINE SULFATE) [Concomitant]

REACTIONS (5)
  - Product quality issue [None]
  - Fall [None]
  - Wrong technique in product usage process [None]
  - Product adhesion issue [None]
  - Incorrect drug administration duration [None]

NARRATIVE: CASE EVENT DATE: 2000
